FAERS Safety Report 13397774 (Version 1)
Quarter: 2017Q2

REPORT INFORMATION
  Report Type: Spontaneous
  Country: CH (occurrence: CH)
  Receive Date: 20170403
  Receipt Date: 20170403
  Transmission Date: 20170830
  Serious: Yes (Hospitalization)
  Sender: FDA-Public Use
  Company Number: CH-PFIZER INC-2017136549

PATIENT
  Age: 68 Year
  Sex: Female
  Weight: 70 kg

DRUGS (13)
  1. NOVALGIN [Concomitant]
     Active Substance: METAMIZOLE SODIUM
     Dosage: 500MG 2 TABLETS THRICE DAILY
     Route: 048
  2. EFFENTORA [Concomitant]
     Active Substance: FENTANYL CITRATE
     Dosage: 300UG UP TO 6 DOSAGE FORMS DAILY AS NEEDED
  3. ATROVENT [Concomitant]
     Active Substance: IPRATROPIUM BROMIDE
     Dosage: 250 UG, ALTERNATE DAY
     Dates: start: 20170210, end: 20170213
  4. VENTOLIN [Concomitant]
     Active Substance: ALBUTEROL SULFATE
     Dosage: 2.5 MG, 2X/ 12HOURS
     Dates: start: 20170210, end: 20170213
  5. SOLU-MEDROL [Suspect]
     Active Substance: METHYLPREDNISOLONE SODIUM SUCCINATE
     Indication: DYSPNOEA
     Dosage: 125 MG, SINGLE (REPORTED AS ^A DOSE OF 125 MG ADMINISTERED)^
     Route: 040
     Dates: start: 20170210, end: 20170210
  6. CO-AMOXI [Concomitant]
     Active Substance: AMOXICILLIN\CLAVULANATE POTASSIUM
     Dosage: 1200 MG, 3X/DAY
     Route: 040
     Dates: start: 20170210, end: 20170214
  7. SERESTA [Suspect]
     Active Substance: OXAZEPAM
     Indication: INSOMNIA
     Dosage: 7.5 MG, DAILY
     Route: 048
  8. CO-AMOXI [Concomitant]
     Active Substance: AMOXICILLIN\CLAVULANATE POTASSIUM
     Indication: PNEUMONIA
     Dosage: 2200 MG
     Route: 040
     Dates: start: 20170210, end: 20170210
  9. FENTANYL. [Concomitant]
     Active Substance: FENTANYL
     Indication: CANCER PAIN
     Dosage: 167.5 UG/HOUR (100+50+ 0.5 X 25)
     Route: 062
  10. LYRICA [Suspect]
     Active Substance: PREGABALIN
     Indication: NEURALGIA
     Dosage: 150 MG, 2X/DAY
     Route: 048
  11. DAFALGAN [Concomitant]
     Active Substance: ACETAMINOPHEN
     Dosage: 1 G, 3X/DAY
  12. ZOLOFT [Suspect]
     Active Substance: SERTRALINE HYDROCHLORIDE
     Indication: DEPRESSION
     Dosage: 50 MG, 1X/DAY
     Route: 048
  13. LANZOPRAZOL [Concomitant]
     Active Substance: LANSOPRAZOLE
     Dosage: 15 MG, 1X/DAY

REACTIONS (1)
  - Delirium [Recovering/Resolving]

NARRATIVE: CASE EVENT DATE: 20170210
